FAERS Safety Report 9240861 (Version 1)
Quarter: 2013Q2

REPORT INFORMATION
  Report Type: Spontaneous
  Country: US (occurrence: None)
  Receive Date: 20130418
  Receipt Date: 20130418
  Transmission Date: 20140414
  Serious: Yes (Other)
  Sender: FDA-Public Use
  Company Number: None

PATIENT
  Age: 40 Year
  Sex: Male
  Weight: 81.65 kg

DRUGS (3)
  1. VENLAFAXINE ER [Suspect]
     Indication: DEPRESSION
     Dosage: 2 CAPSULES
     Route: 048
     Dates: start: 20120801, end: 20120928
  2. VENLAFAXINE ER [Suspect]
     Indication: ANXIETY
     Dosage: 2 CAPSULES
     Route: 048
     Dates: start: 20120801, end: 20120928
  3. VENLAFAXINE ER [Concomitant]

REACTIONS (3)
  - Mood swings [None]
  - Suicidal ideation [None]
  - Product substitution issue [None]
